FAERS Safety Report 9332054 (Version 3)
Quarter: 2013Q3

REPORT INFORMATION
  Report Type: Spontaneous
  Country: US (occurrence: US)
  Receive Date: 20130605
  Receipt Date: 20130712
  Transmission Date: 20140515
  Serious: Yes (Hospitalization, Other)
  Sender: FDA-Public Use
  Company Number: US-RB-054613-13

PATIENT
  Age: 22 Month
  Sex: Female

DRUGS (1)
  1. SUBOXONE TABLET [Suspect]
     Indication: ACCIDENTAL EXPOSURE TO PRODUCT BY CHILD
     Dosage: DOSING DETAILS UNKNOWN
     Route: 048
     Dates: start: 201305, end: 201305

REACTIONS (4)
  - Accidental exposure to product [Recovered/Resolved]
  - Lethargy [Recovered/Resolved]
  - Abasia [Recovered/Resolved]
  - Vomiting [Recovered/Resolved]
